FAERS Safety Report 9234254 (Version 2)
Quarter: 2013Q3

REPORT INFORMATION
  Report Type: Spontaneous
  Country: IT (occurrence: IT)
  Receive Date: 20130416
  Receipt Date: 20130924
  Transmission Date: 20140515
  Serious: Yes (Hospitalization)
  Sender: FDA-Public Use
  Company Number: PHHY2013IT035462

PATIENT
  Age: 64 Year
  Sex: Male

DRUGS (1)
  1. RAMIPRIL [Suspect]
     Indication: SUICIDE ATTEMPT
     Dosage: 50 POSOLOGIC UNITS TOTAL
     Route: 048
     Dates: start: 20130301, end: 20130301

REACTIONS (2)
  - Shock [Recovering/Resolving]
  - Blood creatinine increased [Recovering/Resolving]
